FAERS Safety Report 9202643 (Version 2)
Quarter: 2014Q1

REPORT INFORMATION
  Report Type: Spontaneous
  Country: US (occurrence: US)
  Receive Date: 20130401
  Receipt Date: 20140213
  Transmission Date: 20141002
  Serious: Yes (Other)
  Sender: FDA-Public Use
  Company Number: US-BAYER-2013-039150

PATIENT
  Age: 36 Year
  Sex: Female

DRUGS (14)
  1. YAZ [Suspect]
     Dosage: UNK
     Dates: start: 2006, end: 201111
  2. YASMIN [Suspect]
     Dosage: UNK
     Dates: start: 2006, end: 201111
  3. OCELLA [Suspect]
     Dosage: UNK
     Dates: start: 2006, end: 201111
  4. CHERATUSSIN AC [Concomitant]
     Indication: COUGH
     Dosage: 5-10 ML EVERY 4 TO 6 HOURS AS NEEDED
     Route: 048
  5. VITAMIN D [Concomitant]
     Dosage: 50000 U, EACH WEEK FOR 12 WEEKS
     Route: 048
  6. AZITHROMYCIN [Concomitant]
     Dosage: 250 MG, 2 TABLETS THE FIRST DAY, THEN 1 TABLET FOR 4 MORE DAYS
  7. TUSSIONEX PENNKINETIC [Concomitant]
     Dosage: ONE TEASPOONFUL EVERY 12 HOURS
     Route: 048
  8. TAMIFLU [Concomitant]
     Dosage: 75 MG, BID FOR 5 DAYS
     Route: 048
  9. ALPRAZOLAM [Concomitant]
     Dosage: 1 MG, EVERY SIX HOURS AS NEEDED
     Route: 048
  10. ALPRAZOLAM [Concomitant]
     Dosage: UNK
  11. OXYCODONE/APAP [Concomitant]
     Dosage: 10-325 MG, 1-2 TABLETS EVERY 4 TO 6 HOURS AS NEEDED
     Route: 048
  12. TOPIRAMATE [Concomitant]
     Dosage: 50 MG, BID
     Route: 048
  13. GLYCOPYRROLATE [Concomitant]
     Indication: ABDOMINAL PAIN
     Dosage: 2 MG, BID AS NEEDED
     Route: 048
  14. HYDROCODONE W/APAP [Concomitant]
     Indication: ABDOMINAL PAIN
     Dosage: 7.5-750 MG EVERY 8 HOURS AS NEEDED
     Route: 048

REACTIONS (4)
  - Cholecystectomy [None]
  - Cholecystitis [None]
  - Pain [None]
  - Injury [None]
